FAERS Safety Report 15566789 (Version 3)
Quarter: 2019Q2

REPORT INFORMATION
  Report Type: Report from Study
  Country: PL (occurrence: PL)
  Receive Date: 20181030
  Receipt Date: 20190607
  Transmission Date: 20190711
  Serious: Yes (Other)
  Sender: FDA-Public Use
  Company Number: PL-PFIZER INC-2018440134

PATIENT

DRUGS (5)
  1. RITUXIMAB. [Suspect]
     Active Substance: RITUXIMAB
     Indication: MANTLE CELL LYMPHOMA
     Dosage: 375 MG/M2, EVERY 3 WEEKS  [EITHER SIX OR EIGHT CYCLES OF INDUCTION THERAPY (21-DAY CYCLES)]
     Route: 042
  2. VELCADE [Suspect]
     Active Substance: BORTEZOMIB
     Indication: MANTLE CELL LYMPHOMA
     Dosage: 1.3 MG/M2, EVERY 3 WEEKS (DAYS 1,4, 8 AND 11 OF EACH CYCLE) SIX OR EIGHT CYCLES OF INDUCTION THERAPY
     Route: 042
  3. DOXORUBICIN HCL [Suspect]
     Active Substance: DOXORUBICIN HYDROCHLORIDE
     Indication: MANTLE CELL LYMPHOMA
     Dosage: 50 MG/M2, EVERY 3 WEEKS [EITHER SIX OR EIGHT CYCLES OF INDUCTION THERAPY (21-DAY CYCLES)]
  4. CYCLOPHOSPHAMIDE. [Suspect]
     Active Substance: CYCLOPHOSPHAMIDE
     Indication: MANTLE CELL LYMPHOMA
     Dosage: 750 MG/M2, EVERY 3 WEEKS [SIX OR EIGHT CYCLES OF INDUCTION THERAPY (21-DAY CYCLES)]
  5. PREDNISONE. [Suspect]
     Active Substance: PREDNISONE
     Indication: MANTLE CELL LYMPHOMA
     Dosage: 100 MG/M2, EVERY 3 WEEKS [SIX OR EIGHT CYCLES OF INDUCTION THERAPY (21-DAY CYCLES)] (ON DAYS 1-5)
     Route: 048

REACTIONS (2)
  - Gastric cancer stage IV [Not Recovered/Not Resolved]
  - Second primary malignancy [Not Recovered/Not Resolved]
